FAERS Safety Report 15961736 (Version 2)
Quarter: 2019Q4

REPORT INFORMATION
  Report Type: Spontaneous
  Country: US (occurrence: US)
  Receive Date: 20190214
  Receipt Date: 20191115
  Transmission Date: 20200122
  Serious: No
  Sender: FDA-Public Use
  Company Number: US-GLAXOSMITHKLINE-US2019020954

PATIENT
  Age: 87 Year
  Sex: Male

DRUGS (3)
  1. DICLOFENAC SODIUM GEL [Interacting]
     Active Substance: DICLOFENAC SODIUM
     Indication: JOINT SWELLING
  2. FLUTICASONE. [Interacting]
     Active Substance: FLUTICASONE
     Indication: PRODUCT USED FOR UNKNOWN INDICATION
     Dosage: UNK
  3. DICLOFENAC SODIUM GEL [Suspect]
     Active Substance: DICLOFENAC SODIUM
     Indication: ARTHRITIS
     Dosage: UNK

REACTIONS (4)
  - Drug effective for unapproved indication [Unknown]
  - Product use in unapproved indication [Unknown]
  - Drug interaction [Unknown]
  - Contraindicated product administered [Unknown]
